FAERS Safety Report 5388896-0 (Version None)
Quarter: 2007Q3

REPORT INFORMATION
  Report Type: 
  Country: None (occurrence: None)
  Receive Date: 20070717
  Receipt Date: 20070710
  Transmission Date: 20080115
  Serious: Yes (Hospitalization)
  Sender: FDA-Public Use
  Company Number: HQWYE111020OCT05

PATIENT
  Sex: Female
  Weight: 71.6 kg

DRUGS (8)
  1. RAPAMUNE [Suspect]
     Indication: PROPHYLAXIS AGAINST TRANSPLANT REJECTION
     Dosage: UNSPECIFIED
     Route: 048
     Dates: start: 20040926
  2. RAPAMUNE [Suspect]
     Route: 048
     Dates: start: 20050930, end: 20051014
  3. RAPAMUNE [Suspect]
     Route: 048
     Dates: start: 20051015
  4. ATORVASTATIN CALCIUM [Concomitant]
     Route: 048
     Dates: start: 20050323
  5. CYCLOSPORINE [Concomitant]
     Route: 048
     Dates: start: 20050927
  6. SULFAMETHOXAZOLE AND TRIMETHOPRIM [Concomitant]
     Route: 048
     Dates: start: 20041126
  7. PROPRANOLOL [Concomitant]
     Route: 048
     Dates: start: 20041217
  8. PREDNISONE [Concomitant]
     Route: 048
     Dates: start: 20050323

REACTIONS (1)
  - VARICOSE VEIN [None]
